FAERS Safety Report 7753586-3 (Version None)
Quarter: 2011Q3

REPORT INFORMATION
  Report Type: 
  Country: None (occurrence: None)
  Receive Date: 20110915
  Receipt Date: 20110117
  Transmission Date: 20111222
  Serious: Yes (Hospitalization)
  Sender: FDA-Public Use
  Company Number: US-GLAXOSMITHKLINE-A0908346A

PATIENT
  Age: 39 Year
  Sex: Male

DRUGS (5)
  1. DIOVAN [Concomitant]
  2. NORVASC [Concomitant]
  3. CARDURA [Concomitant]
  4. AVANDIA [Suspect]
     Indication: DIABETES MELLITUS
     Route: 048
  5. SIMVASTATIN [Concomitant]

REACTIONS (1)
  - CEREBROVASCULAR DISORDER [None]
